FAERS Safety Report 9993940 (Version 2)
Quarter: 2014Q1

REPORT INFORMATION
  Report Type: Spontaneous
  Country: US (occurrence: US)
  Receive Date: 20140310
  Receipt Date: 20140310
  Transmission Date: 20141002
  Serious: No
  Sender: FDA-Public Use
  Company Number: US-AMGEN-USASP2013047255

PATIENT
  Age: 51 Year
  Sex: Female

DRUGS (16)
  1. SENSIPAR [Suspect]
     Indication: HYPERPARATHYROIDISM SECONDARY
     Dosage: 30 MG, QD
     Route: 048
     Dates: start: 20130221, end: 20130703
  2. TRAZODONE [Concomitant]
     Dosage: 150 MG, QD
     Dates: start: 20120725
  3. MORPHINE [Concomitant]
     Indication: PAIN
     Dosage: 30 MG, EVERY 4 TO 6 HOURS
     Dates: start: 20120725
  4. PROZAC [Concomitant]
     Dosage: 40 MG, QD
     Dates: start: 20130725
  5. LASIX                              /00032601/ [Concomitant]
  6. RENVELA [Concomitant]
     Dosage: 800 MG, TID
     Dates: start: 20130620
  7. ZYRTEC [Concomitant]
     Dosage: 10 MG, QD
     Dates: start: 20120725
  8. TRICOR                             /00499301/ [Concomitant]
     Dosage: 134 MG, QD
     Dates: start: 20130524
  9. SIMVASTATIN [Concomitant]
     Dosage: 40 MG, QD
     Dates: start: 20130524
  10. FOSRENOL [Concomitant]
     Dosage: 500 G, QD
     Dates: start: 20130620
  11. ATARAX                             /00058401/ [Concomitant]
     Indication: PRURITUS
     Dosage: 50 MG, UNK
     Dates: start: 20130620
  12. DIALYVITE [Concomitant]
     Dosage: 1 DF, QD
     Dates: start: 20120725
  13. ELMIRON [Concomitant]
     Dosage: 100 MG, QD
     Dates: start: 20120725
  14. PROMETHAZINE [Concomitant]
     Indication: NAUSEA
     Dosage: 25 MG, UNK
     Dates: start: 20130620
  15. URISPAS [Concomitant]
     Dosage: 100 MG, AS NEEDED
     Dates: start: 20120725
  16. ZOFRAN /00955301/ [Suspect]
     Indication: NAUSEA
     Dosage: 4 MG, AS NEEDED
     Dates: start: 20121018

REACTIONS (2)
  - Vomiting [Recovered/Resolved]
  - Nausea [Recovered/Resolved]
